FAERS Safety Report 4956984-6 (Version None)
Quarter: 2006Q1

REPORT INFORMATION
  Report Type: 
  Country: None (occurrence: None)
  Receive Date: 20060127
  Receipt Date: 20041021
  Transmission Date: 20060701
  Serious: Yes (Hospitalization)
  Sender: FDA-Public Use
  Company Number: 04-10-1472

PATIENT
  Age: 85 Year
  Sex: Female

DRUGS (2)
  1. CLOZAPINE [Suspect]
     Indication: BIPOLAR I DISORDER
     Dosage: 25-125MG QD, ORAL
     Route: 048
     Dates: start: 19980701
  2. CLOZAPINE [Suspect]
     Indication: SCHIZOPHRENIA
     Dosage: 25-125MG QD, ORAL
     Route: 048
     Dates: start: 19980701

REACTIONS (1)
  - DEPRESSION [None]
